FAERS Safety Report 5749144-2 (Version None)
Quarter: 2008Q2

REPORT INFORMATION
  Report Type: 
  Country: None (occurrence: None)
  Receive Date: 20080522
  Receipt Date: 20080509
  Transmission Date: 20081010
  Serious: Yes (Life-Threatening, Hospitalization, Other)
  Sender: FDA-Public Use
  Company Number: GXKR2008GB04329

PATIENT
  Age: 54 Year
  Sex: Male

DRUGS (4)
  1. TRIFLUOPERAZINE HCL [Suspect]
     Indication: PSYCHOTIC DISORDER
     Dosage: 12.5 MG, ORAL
     Route: 048
     Dates: end: 20080422
  2. LANSOPRAZOLE [Concomitant]
  3. PROCYCLIDINE HYDROCHLORIDE 2MG TAB [Concomitant]
  4. SENNA (SENNA, SENNA ALEXANDRINA) [Concomitant]

REACTIONS (1)
  - VOCAL CORD PARALYSIS [None]
